FAERS Safety Report 17689619 (Version 1)
Quarter: 2020Q2

REPORT INFORMATION
  Report Type: Spontaneous
  Country: US (occurrence: US)
  Receive Date: 20200421
  Receipt Date: 20200421
  Transmission Date: 20200714
  Serious: No
  Sender: FDA-Public Use
  Company Number: US-DUCHESNAY-2019US000010

PATIENT
  Age: 65 Year
  Sex: Female

DRUGS (1)
  1. OSPHENA [Suspect]
     Active Substance: OSPEMIFENE
     Indication: VULVOVAGINAL DRYNESS
     Dosage: UNK

REACTIONS (6)
  - Fatigue [Unknown]
  - Muscle spasms [Unknown]
  - Hot flush [Unknown]
  - Irritability [Unknown]
  - Emotional disorder [Unknown]
  - Pain in extremity [Unknown]
